FAERS Safety Report 5816855-X (Version None)
Quarter: 2008Q3

REPORT INFORMATION
  Report Type: 
  Country: None (occurrence: None)
  Receive Date: 20080721
  Receipt Date: 20080721
  Transmission Date: 20090109
  Serious: Yes (Hospitalization)
  Sender: FDA-Public Use
  Company Number: PHHO2000GB03785

PATIENT
  Sex: Male
  Weight: 87 kg

DRUGS (2)
  1. NEORAL [Suspect]
     Indication: RENAL TRANSPLANT
     Dosage: 12.5 MG, UNK
     Route: 048
     Dates: start: 19990712
  2. RAD 666 RAD+ [Suspect]
     Indication: RENAL TRANSPLANT
     Dosage: 1.5 MG, BID
     Route: 048
     Dates: start: 19990712

REACTIONS (1)
  - DEHYDRATION [None]
